FAERS Safety Report 6329521-1 (Version None)
Quarter: 2009Q3

REPORT INFORMATION
  Report Type: 
  Country: None (occurrence: None)
  Receive Date: 20090825
  Receipt Date: 20090825
  Transmission Date: 20100115
  Serious: Yes (Other)
  Sender: FDA-Public Use
  Company Number: None

PATIENT
  Age: 68 Year
  Sex: Female
  Weight: 49.8957 kg

DRUGS (1)
  1. LUMIGAN [Suspect]
     Indication: GLAUCOMA
     Dosage: ONE DROP DAILY
     Dates: start: 20081118, end: 20090806

REACTIONS (5)
  - BLEPHARITIS [None]
  - DRY EYE [None]
  - EYE DISCHARGE [None]
  - PIGMENTATION DISORDER [None]
  - SKIN IRRITATION [None]
